FAERS Safety Report 6129847-0 (Version None)
Quarter: 2009Q1

REPORT INFORMATION
  Report Type: 
  Country: None (occurrence: None)
  Receive Date: 20090323
  Receipt Date: 20090323
  Transmission Date: 20090719
  Serious: No
  Sender: FDA-Public Use
  Company Number: None

PATIENT
  Sex: Female
  Weight: 88.4514 kg

DRUGS (2)
  1. IBUPROFEN [Suspect]
     Indication: ARTHRITIS
     Dosage: 2 TABLETS ONCE PO
     Route: 048
     Dates: start: 20090318, end: 20090318
  2. IBUPROFEN [Suspect]
     Indication: HEADACHE
     Dosage: 2 TABLETS ONCE PO
     Route: 048
     Dates: start: 20090318, end: 20090318

REACTIONS (5)
  - DIZZINESS [None]
  - DYSSTASIA [None]
  - FEELING ABNORMAL [None]
  - PRODUCT QUALITY ISSUE [None]
  - VERTIGO [None]
